FAERS Safety Report 7328506-6 (Version None)
Quarter: 2011Q1

REPORT INFORMATION
  Report Type: 
  Country: None (occurrence: None)
  Receive Date: 20110216
  Receipt Date: 20110103
  Transmission Date: 20110831
  Serious: Yes (Other)
  Sender: FDA-Public Use
  Company Number: DSA_44914_2011

PATIENT
  Age: 51 Year
  Sex: Male

DRUGS (4)
  1. LITHIUM [Concomitant]
  2. WELLBUTRIN XL [Suspect]
     Indication: DEPRESSION
     Dosage: (300 MG QD ORAL)
     Route: 048
  3. MIRTAZAPINE [Concomitant]
  4. SERTRALINE [Concomitant]

REACTIONS (2)
  - ANXIETY [None]
  - HALLUCINATION [None]
